APPROVED DRUG PRODUCT: COLESEVELAM HYDROCHLORIDE
Active Ingredient: COLESEVELAM HYDROCHLORIDE
Strength: 3.75GM/PACKET
Dosage Form/Route: FOR SUSPENSION;ORAL
Application: A202178 | Product #002
Applicant: WATSON LABORATORIES INC
Approved: Sep 1, 2020 | RLD: No | RS: No | Type: DISCN